FAERS Safety Report 4632661-6 (Version None)
Quarter: 2005Q2

REPORT INFORMATION
  Report Type: 
  Country: None (occurrence: None)
  Receive Date: 20050331
  Receipt Date: 20041022
  Transmission Date: 20051028
  Serious: Yes (Hospitalization)
  Sender: FDA-Public Use
  Company Number: 200415147BCC

PATIENT
  Sex: Female
  Weight: 58.9676 kg

DRUGS (4)
  1. ALEVE (CAPLET) [Suspect]
     Dosage: ORAL
     Route: 048
  2. ALKA-SELTZER [Suspect]
  3. CLARITIN [Concomitant]
  4. ALBUTEROL [Concomitant]

REACTIONS (2)
  - ABDOMINAL PAIN UPPER [None]
  - DYSPNOEA [None]
